FAERS Safety Report 25543661 (Version 1)
Quarter: 2025Q3

REPORT INFORMATION
  Report Type: Report from Study
  Country: EU (occurrence: EU)
  Receive Date: 20250711
  Receipt Date: 20250711
  Transmission Date: 20251021
  Serious: Yes (Death, Hospitalization, Other)
  Sender: JOHNSON AND JOHNSON
  Company Number: EU-JNJFOC-20250710059

PATIENT
  Sex: Female
  Weight: 73 kg

DRUGS (5)
  1. UPTRAVI [Suspect]
     Active Substance: SELEXIPAG
     Indication: Pulmonary arterial hypertension
     Route: 048
     Dates: start: 20200324
  2. UPTRAVI [Suspect]
     Active Substance: SELEXIPAG
     Route: 048
     Dates: start: 20200407
  3. UPTRAVI [Suspect]
     Active Substance: SELEXIPAG
     Route: 048
     Dates: start: 20200518
  4. OPSUMIT [Suspect]
     Active Substance: MACITENTAN
     Indication: Pulmonary arterial hypertension
     Route: 048
     Dates: start: 20191202
  5. SILDENAFIL [Concomitant]
     Active Substance: SILDENAFIL
     Indication: Pulmonary arterial hypertension
     Dates: start: 20200107, end: 20200116

REACTIONS (6)
  - Pneumonia [Fatal]
  - Pulmonary arterial hypertension [Fatal]
  - Right ventricular failure [Recovered/Resolved]
  - Anaemia [Recovered/Resolved]
  - Respiratory failure [Unknown]
  - Hypercapnia [Unknown]

NARRATIVE: CASE EVENT DATE: 20240507
